FAERS Safety Report 9654009 (Version 1)
Quarter: 2013Q4

REPORT INFORMATION
  Report Type: Spontaneous
  Country: US (occurrence: US)
  Receive Date: 20131029
  Receipt Date: 20131029
  Transmission Date: 20140711
  Serious: No
  Sender: FDA-Public Use
  Company Number: US-BIOGENIDEC-2013BI082634

PATIENT
  Age: 45 Year
  Sex: Female

DRUGS (3)
  1. TECFIDERA [Suspect]
     Indication: MULTIPLE SCLEROSIS
     Dates: start: 20130630
  2. TECFIDERA [Suspect]
     Indication: MULTIPLE SCLEROSIS
     Route: 048
     Dates: start: 20130715, end: 20130815
  3. AMANTADINE [Concomitant]
     Indication: FATIGUE
     Dates: start: 20130603

REACTIONS (5)
  - Insomnia [Unknown]
  - Headache [Recovered/Resolved]
  - Diarrhoea [Unknown]
  - Arthralgia [Unknown]
  - Discomfort [Unknown]
